FAERS Safety Report 17765551 (Version 1)
Quarter: 2020Q2

REPORT INFORMATION
  Report Type: Spontaneous
  Country: US (occurrence: US)
  Receive Date: 20200509
  Receipt Date: 20200509
  Transmission Date: 20200714
  Serious: No
  Sender: FDA-Public Use
  Company Number: None

PATIENT
  Age: 58 Year
  Sex: Male
  Weight: 78.75 kg

DRUGS (24)
  1. IRON [Concomitant]
     Active Substance: IRON
  2. VITAMIN D3 [Concomitant]
     Active Substance: CHOLECALCIFEROL
  3. VITAMIN C [Concomitant]
     Active Substance: ASCORBIC ACID
  4. ENOXAPARIN [Concomitant]
     Active Substance: ENOXAPARIN
  5. CELLCEPT [Concomitant]
     Active Substance: MYCOPHENOLATE MOFETIL\MYCOPHENOLATE MOFETIL HYDROCHLORIDE
  6. NIEFEDIPINE [Concomitant]
  7. BACTRIM [Concomitant]
     Active Substance: SULFAMETHOXAZOLE\TRIMETHOPRIM
  8. VITAMIN C [Concomitant]
     Active Substance: ASCORBIC ACID
  9. GABAPENTIN. [Concomitant]
     Active Substance: GABAPENTIN
  10. CALCIUM [Concomitant]
     Active Substance: CALCIUM
  11. CLONIDINE PATCH [Concomitant]
     Active Substance: CLONIDINE
  12. METROPROLOL [Concomitant]
     Active Substance: METOPROLOL
  13. STRESS B [Concomitant]
  14. RINGERS LACTATE [Suspect]
     Active Substance: CALCIUM CHLORIDE\POTASSIUM CHLORIDE\SODIUM LACTATE
     Indication: HEADACHE
     Dosage: ?          OTHER FREQUENCY:JUST ONCE;?
     Route: 042
  15. TAMSULOSIN [Concomitant]
     Active Substance: TAMSULOSIN
  16. SPIRONOLACTONE. [Concomitant]
     Active Substance: SPIRONOLACTONE
  17. TUMERIC [Concomitant]
     Active Substance: HERBALS\TURMERIC
  18. AMITRIPTYLINE [Concomitant]
     Active Substance: AMITRIPTYLINE
  19. OXYBUTYNIN. [Concomitant]
     Active Substance: OXYBUTYNIN CHLORIDE
  20. CALCIUM [Concomitant]
     Active Substance: CALCIUM
  21. ATORVASTATIN [Concomitant]
     Active Substance: ATORVASTATIN
  22. TRAMADOL. [Concomitant]
     Active Substance: TRAMADOL
  23. PREDNISONE. [Concomitant]
     Active Substance: PREDNISONE
  24. TOPIRAMATE. [Concomitant]
     Active Substance: TOPIRAMATE

REACTIONS (1)
  - Thrombosis [None]

NARRATIVE: CASE EVENT DATE: 20200310
